FAERS Safety Report 5761634-5 (Version None)
Quarter: 2008Q2

REPORT INFORMATION
  Report Type: 
  Country: None (occurrence: None)
  Receive Date: 20080606
  Receipt Date: 20080527
  Transmission Date: 20081010
  Serious: Yes (Other)
  Sender: FDA-Public Use
  Company Number: US-PFIZER INC-2007098423

PATIENT
  Sex: Male

DRUGS (5)
  1. BEXTRA [Suspect]
     Indication: CHEST PAIN
     Dosage: TEXT:10MG-20MG
  2. BEXTRA [Suspect]
     Indication: MUSCULOSKELETAL PAIN
  3. BEXTRA [Suspect]
     Indication: ARTHRITIS
  4. CELEBREX [Suspect]
     Indication: ARTHRITIS
  5. NAPROSYN [Concomitant]

REACTIONS (10)
  - DERMATITIS [None]
  - ECZEMA [None]
  - GASTROINTESTINAL HAEMORRHAGE [None]
  - HERPES ZOSTER [None]
  - MALIGNANT MELANOMA [None]
  - MYOCARDIAL INFARCTION [None]
  - PRURITUS [None]
  - RASH [None]
  - TINEA CRURIS [None]
  - URTICARIA [None]
